FAERS Safety Report 21763604 (Version 6)
Quarter: 2023Q2

REPORT INFORMATION
  Report Type: Report from Study
  Country: US (occurrence: US)
  Receive Date: 20221222
  Receipt Date: 20230516
  Transmission Date: 20230721
  Serious: No
  Sender: FDA-Public Use
  Company Number: US-002147023-NVSC2022US295687

PATIENT
  Sex: Male

DRUGS (2)
  1. ENTRESTO [Suspect]
     Active Substance: SACUBITRIL\VALSARTAN
     Indication: Product used for unknown indication
     Dosage: UNK
     Route: 065
  2. ENTRESTO [Suspect]
     Active Substance: SACUBITRIL\VALSARTAN
     Dosage: 1 DOSAGE FORM ( 49/51MG)
     Route: 065

REACTIONS (7)
  - COVID-19 [Unknown]
  - Sinusitis [Unknown]
  - Oropharyngeal pain [Unknown]
  - Bone pain [Unknown]
  - Dizziness [Recovered/Resolved]
  - Fatigue [Unknown]
  - Yawning [Unknown]
